FAERS Safety Report 25432183 (Version 1)
Quarter: 2025Q2

REPORT INFORMATION
  Report Type: Spontaneous
  Country: US (occurrence: US)
  Receive Date: 20250613
  Receipt Date: 20250613
  Transmission Date: 20250717
  Serious: No
  Sender: SUNOVION
  Company Number: US-SMPA-2025SPA006376AA

PATIENT

DRUGS (1)
  1. GEMTESA [Suspect]
     Active Substance: VIBEGRON
     Indication: Hypertonic bladder
     Dosage: 75 MG, QD
     Route: 048
     Dates: start: 20250513

REACTIONS (5)
  - Paraesthesia oral [Unknown]
  - Lip swelling [Not Recovered/Not Resolved]
  - Blood glucose decreased [Recovering/Resolving]
  - Musculoskeletal stiffness [Unknown]
  - Physical product label issue [Unknown]

NARRATIVE: CASE EVENT DATE: 20250501
